FAERS Safety Report 8894583 (Version 1)
Quarter: 2012Q4

REPORT INFORMATION
  Report Type: 
  Country: US (occurrence: US)
  Receive Date: 20121107
  Receipt Date: 20121107
  Transmission Date: 20130627
  Serious: No
  Sender: FDA-Public Use
  Company Number: US-AMGEN-USASP2011059246

PATIENT
  Age: 58 Year
  Weight: 124.72 kg

DRUGS (5)
  1. ENBREL [Suspect]
     Indication: PRODUCT USED FOR UNKNOWN INDICATION
     Dosage: 50 mg, qwk
  2. NORVASC [Concomitant]
     Dosage: 2.5 mg, UNK
  3. FOLIC ACID [Concomitant]
     Dosage: 1 mg, UNK
  4. HUMIRA [Concomitant]
     Dosage: UNK
  5. OXYCONTIN [Concomitant]
     Dosage: 60 mg, UNK

REACTIONS (2)
  - Rheumatoid arthritis [Unknown]
  - Upper respiratory tract infection [Unknown]
